FAERS Safety Report 16880206 (Version 3)
Quarter: 2019Q4

REPORT INFORMATION
  Report Type: Report from Study
  Country: US (occurrence: US)
  Receive Date: 20191003
  Receipt Date: 20191223
  Transmission Date: 20200122
  Serious: Yes (Life-Threatening, Other)
  Sender: FDA-Public Use
  Company Number: US-SHIRE-US201932515

PATIENT
  Sex: Female

DRUGS (3)
  1. PARATHYROID HORMONE [Suspect]
     Active Substance: PARATHYROID HORMONE
     Indication: HYPOPARATHYROIDISM
     Dosage: 75 MICROGRAM, 1X/DAY:QD
     Route: 065
  2. CALCITRIOL. [Concomitant]
     Active Substance: CALCITRIOL
     Indication: PRODUCT USED FOR UNKNOWN INDICATION
  3. CALCIUM [Concomitant]
     Active Substance: CALCIUM
     Indication: PRODUCT USED FOR UNKNOWN INDICATION

REACTIONS (5)
  - Hypocalcaemia [Not Recovered/Not Resolved]
  - Wrong technique in product usage process [Unknown]
  - Recalled product [Unknown]
  - Psychiatric decompensation [Unknown]
  - Neurological decompensation [Unknown]
